FAERS Safety Report 5843345-0 (Version None)
Quarter: 2008Q3

REPORT INFORMATION
  Report Type: 
  Country: None (occurrence: None)
  Receive Date: 20080813
  Receipt Date: 20080709
  Transmission Date: 20090109
  Serious: No
  Sender: FDA-Public Use
  Company Number: US-BAYER-200828722NA

PATIENT
  Age: 58 Year
  Sex: Female
  Weight: 86 kg

DRUGS (1)
  1. MAGNEVIST [Suspect]
     Indication: NUCLEAR MAGNETIC RESONANCE IMAGING
     Dosage: TOTAL DAILY DOSE: 23 ML  UNIT DOSE: 100 ML
     Route: 042
     Dates: start: 20080709, end: 20080709

REACTIONS (7)
  - COUGH [None]
  - DYSPNOEA [None]
  - LACRIMATION INCREASED [None]
  - NAUSEA [None]
  - RHINORRHOEA [None]
  - SPEECH DISORDER [None]
  - VOMITING [None]
